FAERS Safety Report 23165365 (Version 4)
Quarter: 2024Q2

REPORT INFORMATION
  Report Type: Report from Study
  Country: NL (occurrence: NL)
  Receive Date: 20231109
  Receipt Date: 20240530
  Transmission Date: 20240716
  Serious: Yes (Hospitalization)
  Sender: FDA-Public Use
  Company Number: NL-ABBVIE-5487676

PATIENT
  Age: 84 Year
  Sex: Female

DRUGS (14)
  1. CARBIDOPA\LEVODOPA [Suspect]
     Active Substance: CARBIDOPA\LEVODOPA
     Indication: Parkinson^s disease
     Dosage: MD: 12.0ML, CD: 1.6ML/H, ED: 0.8ML?REMAINS AT 16 HOURS
     Route: 050
     Dates: start: 20240522
  2. CARBIDOPA\LEVODOPA [Suspect]
     Active Substance: CARBIDOPA\LEVODOPA
     Dosage: REMAINS AT 16 HOURS
     Route: 050
     Dates: start: 20221122
  3. CARBIDOPA\LEVODOPA [Suspect]
     Active Substance: CARBIDOPA\LEVODOPA
     Dosage: MD: 12.0ML, CD: 1.8ML/H, ED: 1.0ML?REMAINS AT 16 HOURS
     Route: 050
     Dates: start: 20240314, end: 20240328
  4. CARBIDOPA\LEVODOPA [Suspect]
     Active Substance: CARBIDOPA\LEVODOPA
     Dosage: MD: 12.0ML, CD: 1.8ML/H, ED: 1.0ML?REMAINS AT 16 HOURS
     Route: 050
     Dates: start: 20231020, end: 20231123
  5. CARBIDOPA\LEVODOPA [Suspect]
     Active Substance: CARBIDOPA\LEVODOPA
     Dosage: MD: 11.0ML, CD: 1.8ML/H, ED: 1.0ML?REMAINS AT 16 HOURS
     Route: 050
     Dates: start: 20230707, end: 20231020
  6. CARBIDOPA\LEVODOPA [Suspect]
     Active Substance: CARBIDOPA\LEVODOPA
     Dosage: MD: 12.0ML, CD: 1.8ML/H, ED: 1.0ML?REMAINS AT 16 HOURS
     Route: 050
     Dates: start: 20231123, end: 20240314
  7. CARBIDOPA\LEVODOPA [Suspect]
     Active Substance: CARBIDOPA\LEVODOPA
     Dosage: MD: 12.0ML, CD: 1.6ML/H, ED: 1.0ML?REMAINS AT 16 HOURS
     Route: 050
     Dates: start: 20240328, end: 20240522
  8. ROPINIROLE [Concomitant]
     Active Substance: ROPINIROLE
     Indication: Parkinson^s disease
     Dosage: FREQUENCY TEXT: EVERY NIGHT
     Route: 048
  9. ROPINIROLE [Concomitant]
     Active Substance: ROPINIROLE
     Indication: Parkinson^s disease
     Route: 048
  10. BENSERAZIDE HYDROCHLORIDE\LEVODOPA [Concomitant]
     Active Substance: BENSERAZIDE HYDROCHLORIDE\LEVODOPA
     Indication: Parkinson^s disease
     Dosage: MADOPAR DISPERSIBLE TABLETS?FORM STRENGTH: 125 MILLIGRAM?FREQUENCY TEXT: 1 TO 4 TABLETS PER DAY W...
     Route: 048
  11. MOVICOLON [Concomitant]
     Active Substance: POLYETHYLENE GLYCOL 3350\POTASSIUM CHLORIDE\SODIUM BICARBONATE\SODIUM CHLORIDE
     Indication: Bowel movement irregularity
     Dosage: 1 SACHET
  12. SILVER NITRATE [Concomitant]
     Active Substance: SILVER NITRATE
     Indication: Fibroma
     Route: 061
  13. BENSERAZIDE HYDROCHLORIDE\LEVODOPA [Concomitant]
     Active Substance: BENSERAZIDE HYDROCHLORIDE\LEVODOPA
     Indication: Parkinson^s disease
     Dosage: TIME INTERVAL: 0.33333333 DAYS: MADOPAR CAPSULE?FORM STRENGTH: 62.5 MILLIGRAM
     Route: 048
  14. BENSERAZIDE HYDROCHLORIDE\LEVODOPA [Concomitant]
     Active Substance: BENSERAZIDE HYDROCHLORIDE\LEVODOPA
     Indication: Parkinson^s disease
     Dosage: MADOPAR CAPSULE ?FORM STRENGTH: 125 MILLIGRAM
     Route: 048

REACTIONS (35)
  - Pleural effusion [Recovering/Resolving]
  - Gait disturbance [Not Recovered/Not Resolved]
  - Pneumonia [Recovering/Resolving]
  - On and off phenomenon [Not Recovered/Not Resolved]
  - Reduced facial expression [Not Recovered/Not Resolved]
  - Essential tremor [Not Recovered/Not Resolved]
  - Therapeutic product effect decreased [Not Recovered/Not Resolved]
  - Dyskinesia [Recovering/Resolving]
  - Memory impairment [Not Recovered/Not Resolved]
  - Hypotension [Recovering/Resolving]
  - Abdominal pain [Not Recovered/Not Resolved]
  - Incorrect dose administered [Not Recovered/Not Resolved]
  - Restlessness [Not Recovered/Not Resolved]
  - Fibroma [Not Recovered/Not Resolved]
  - Urinary tract infection [Recovering/Resolving]
  - Agitation [Not Recovered/Not Resolved]
  - Hallucination [Not Recovered/Not Resolved]
  - Device dislocation [Recovered/Resolved]
  - Mobility decreased [Not Recovered/Not Resolved]
  - Depressed mood [Not Recovered/Not Resolved]
  - Limb discomfort [Not Recovered/Not Resolved]
  - Dyschezia [Not Recovered/Not Resolved]
  - Confusional state [Not Recovered/Not Resolved]
  - Constipation [Not Recovered/Not Resolved]
  - Freezing phenomenon [Not Recovered/Not Resolved]
  - Stoma site discharge [Not Recovered/Not Resolved]
  - Anxiety [Not Recovered/Not Resolved]
  - Poor quality sleep [Recovering/Resolving]
  - Abnormal dreams [Not Recovered/Not Resolved]
  - Bowel movement irregularity [Not Recovered/Not Resolved]
  - Abnormal faeces [Unknown]
  - Fall [Unknown]
  - Dependent personality disorder [Not Recovered/Not Resolved]
  - Tension [Unknown]
  - Pyrexia [Unknown]

NARRATIVE: CASE EVENT DATE: 20230101
